FAERS Safety Report 15190446 (Version 2)
Quarter: 2018Q3

REPORT INFORMATION
  Report Type: Spontaneous
  Country: FR (occurrence: FR)
  Receive Date: 20180724
  Receipt Date: 20180727
  Transmission Date: 20181010
  Serious: Yes (Other)
  Sender: FDA-Public Use
  Company Number: FR-AUROBINDO-AUR-APL-2018-037113

PATIENT
  Age: 34 Year

DRUGS (8)
  1. OMEPRAZOLE. [Suspect]
     Active Substance: OMEPRAZOLE
     Indication: PRODUCT USED FOR UNKNOWN INDICATION
     Dosage: UNK
     Route: 065
  2. ORKAMBI [Interacting]
     Active Substance: IVACAFTOR\LUMACAFTOR
     Indication: CYSTIC FIBROSIS
     Dosage: UNK
     Route: 048
  3. ITRACONAZOLE. [Interacting]
     Active Substance: ITRACONAZOLE
     Indication: ASPERGILLUS INFECTION
  4. POSACONAZOLE [Suspect]
     Active Substance: POSACONAZOLE
     Dosage: 400 MILLIGRAM, DAILY
     Route: 065
  5. POSACONAZOLE [Suspect]
     Active Substance: POSACONAZOLE
     Dosage: 300 MILLIGRAM, DAILY
     Route: 065
  6. POSACONAZOLE [Suspect]
     Active Substance: POSACONAZOLE
     Indication: ANTIFUNGAL PROPHYLAXIS
     Dosage: 300 MILLIGRAM, TWO TIMES A DAY (0.5 DAY)
     Route: 065
  7. ITRACONAZOLE. [Interacting]
     Active Substance: ITRACONAZOLE
     Indication: ANTIFUNGAL PROPHYLAXIS
     Dosage: UNK
     Route: 065
  8. POSACONAZOLE [Suspect]
     Active Substance: POSACONAZOLE
     Indication: ASPERGILLUS INFECTION
     Dosage: 500 MILLIGRAM, DAILY
     Route: 065

REACTIONS (3)
  - Drug interaction [Recovered/Resolved]
  - Neutropenia [Recovered/Resolved]
  - Drug level decreased [Recovered/Resolved]
